FAERS Safety Report 6749333-4 (Version None)
Quarter: 2010Q2

REPORT INFORMATION
  Report Type: 
  Country: None (occurrence: None)
  Receive Date: 20100601
  Receipt Date: 20100521
  Transmission Date: 20101027
  Serious: Yes (Life-Threatening)
  Sender: FDA-Public Use
  Company Number: JP-ROCHE-698257

PATIENT
  Age: 69 Year
  Sex: Male
  Weight: 58 kg

DRUGS (41)
  1. AVASTIN [Suspect]
     Indication: RECTAL CANCER METASTATIC
     Route: 041
     Dates: start: 20091203, end: 20091203
  2. AVASTIN [Suspect]
     Route: 041
     Dates: start: 20091224, end: 20100218
  3. AVASTIN [Suspect]
     Route: 041
     Dates: start: 20100325, end: 20100415
  4. XELODA [Suspect]
     Indication: RECTAL CANCER METASTATIC
     Route: 048
     Dates: start: 20091224, end: 20100106
  5. XELODA [Suspect]
     Route: 048
     Dates: start: 20100121, end: 20100203
  6. XELODA [Suspect]
     Route: 048
     Dates: start: 20100218, end: 20100303
  7. XELODA [Suspect]
     Route: 048
     Dates: start: 20100325, end: 20100407
  8. XELODA [Suspect]
     Route: 048
     Dates: start: 20100415
  9. ELPLAT [Suspect]
     Indication: RECTAL CANCER METASTATIC
     Route: 041
     Dates: start: 20091106, end: 20091203
  10. ELPLAT [Suspect]
     Route: 041
     Dates: start: 20091224, end: 20100218
  11. ELPLAT [Suspect]
     Route: 041
     Dates: start: 20100325, end: 20100415
  12. FLUOROURACIL [Concomitant]
     Route: 040
     Dates: start: 20091106, end: 20091203
  13. FLUOROURACIL [Concomitant]
     Route: 040
     Dates: start: 20091106, end: 20091201
  14. LEUCOVORIN CALCIUM [Concomitant]
     Route: 041
     Dates: start: 20091106, end: 20091203
  15. GRANISETRON [Concomitant]
     Route: 041
     Dates: start: 20091106, end: 20100218
  16. GRANISETRON [Concomitant]
     Route: 041
     Dates: start: 20100325, end: 20100415
  17. DECADRON [Concomitant]
     Route: 041
     Dates: start: 20091106, end: 20091106
  18. DEXART [Concomitant]
     Route: 041
     Dates: start: 20091203, end: 20100218
  19. DEXART [Concomitant]
     Route: 041
     Dates: start: 20100325, end: 20100415
  20. TAKEPRON [Concomitant]
     Route: 048
     Dates: start: 20091203, end: 20091216
  21. TAKEPRON [Concomitant]
     Route: 048
     Dates: start: 20100121, end: 20100330
  22. TAKEPRON [Concomitant]
     Dosage: 2010 CANNOT BE ENTERED AS STOP DATE, SINCE IT'S GREATER THAN TODAY'S DATE.
     Route: 048
  23. RINDERON [Concomitant]
     Dates: start: 20091204, end: 20091206
  24. SELBEX [Concomitant]
     Route: 048
     Dates: start: 20091224, end: 20100106
  25. SELBEX [Concomitant]
     Route: 048
     Dates: start: 20100121, end: 20100203
  26. SELBEX [Concomitant]
     Route: 048
     Dates: start: 20100218, end: 20100303
  27. SELBEX [Concomitant]
     Route: 048
     Dates: start: 20100325, end: 20100407
  28. SELBEX [Concomitant]
     Route: 048
     Dates: start: 20100415, end: 20100401
  29. PYDOXAL [Concomitant]
     Route: 048
     Dates: start: 20091224, end: 20100113
  30. PYDOXAL [Concomitant]
     Route: 048
     Dates: start: 20100121, end: 20100310
  31. PYDOXAL [Concomitant]
     Dosage: 2010 CANNOT BE CAPTURED AS STOP DATE SINCE IT'S GREATER THAN TODAY'S DATE.
     Route: 048
     Dates: start: 20100325
  32. BETAMETHASONE [Concomitant]
     Dosage: BRAND NAME REPORTED: RINESTERON
     Route: 048
     Dates: start: 20091225, end: 20091227
  33. BETAMETHASONE [Concomitant]
     Route: 048
     Dates: start: 20100122, end: 20100124
  34. BETAMETHASONE [Concomitant]
     Route: 048
     Dates: start: 20100219, end: 20100221
  35. BETAMETHASONE [Concomitant]
     Route: 048
     Dates: start: 20100326, end: 20100328
  36. BETAMETHASONE [Concomitant]
     Route: 048
     Dates: start: 20100416, end: 20100418
  37. HIRUDOID [Concomitant]
     Dosage: DOSAGE UNCERTAIN
     Route: 061
     Dates: start: 20091226, end: 20100417
  38. CALCICOL [Concomitant]
     Route: 041
     Dates: start: 20091224, end: 20100218
  39. CALCICOL [Concomitant]
     Route: 041
     Dates: start: 20100325, end: 20100415
  40. MAGNESOL [Concomitant]
     Route: 041
     Dates: start: 20091224, end: 20100218
  41. MAGNESOL [Concomitant]
     Route: 041
     Dates: start: 20100325, end: 20100415

REACTIONS (3)
  - ANAPHYLACTIC SHOCK [None]
  - EPISTAXIS [None]
  - NEUROPATHY PERIPHERAL [None]
